FAERS Safety Report 13007166 (Version 1)
Quarter: 2016Q4

REPORT INFORMATION
  Report Type: Spontaneous
  Country: US (occurrence: US)
  Receive Date: 20161207
  Receipt Date: 20161207
  Transmission Date: 20170207
  Serious: Yes (Other)
  Sender: FDA-Public Use
  Company Number: US-ELI_LILLY_AND_COMPANY-US201607012948

PATIENT
  Sex: Male
  Weight: 95 kg

DRUGS (5)
  1. DONEPEZIL. [Concomitant]
     Active Substance: DONEPEZIL
     Indication: PRODUCT USED FOR UNKNOWN INDICATION
     Dosage: 10 MG, QD
     Route: 065
  2. CYMBALTA [Suspect]
     Active Substance: DULOXETINE HYDROCHLORIDE
     Dosage: 60 MG, QD
     Route: 065
     Dates: start: 20130716
  3. ATORVASTATIN [Concomitant]
     Active Substance: ATORVASTATIN
     Indication: PRODUCT USED FOR UNKNOWN INDICATION
     Dosage: 20 MG, QD
     Route: 065
  4. CYMBALTA [Suspect]
     Active Substance: DULOXETINE HYDROCHLORIDE
     Indication: PAIN
     Dosage: UNK, UNKNOWN
     Route: 065
     Dates: start: 20080519
  5. LISINOPRIL/HYDROCHLOORTHIAZIDE [Concomitant]
     Indication: PRODUCT USED FOR UNKNOWN INDICATION
     Dosage: 1 DF, QD
     Route: 065

REACTIONS (34)
  - Depressed mood [Unknown]
  - Nausea [Unknown]
  - Fatigue [Unknown]
  - Diarrhoea [Unknown]
  - Abdominal pain [Unknown]
  - Hypoaesthesia [Unknown]
  - Drug withdrawal syndrome [Unknown]
  - Hyperhidrosis [Unknown]
  - Irritability [Unknown]
  - Gait disturbance [Unknown]
  - Sensory disturbance [Unknown]
  - Confusional state [Unknown]
  - Pain in extremity [Unknown]
  - Headache [Unknown]
  - Vestibulitis [Unknown]
  - Lethargy [Unknown]
  - Agitation [Unknown]
  - Insomnia [Unknown]
  - Suicidal ideation [Unknown]
  - Affect lability [Unknown]
  - Balance disorder [Unknown]
  - Asthenia [Unknown]
  - Memory impairment [Unknown]
  - Dysphoria [Unknown]
  - Vomiting [Unknown]
  - Anxiety [Unknown]
  - Paraesthesia [Unknown]
  - Deafness [Unknown]
  - Muscle spasms [Unknown]
  - Tinnitus [Unknown]
  - Tremor [Unknown]
  - Presyncope [Unknown]
  - Vertigo [Unknown]
  - Dizziness [Unknown]
